FAERS Safety Report 23423495 (Version 1)
Quarter: 2024Q1

REPORT INFORMATION
  Report Type: Spontaneous
  Country: CN (occurrence: CN)
  Receive Date: 20240119
  Receipt Date: 20240119
  Transmission Date: 20240410
  Serious: Yes (Other)
  Sender: FDA-Public Use
  Company Number: CN-PFIZER INC-PV202400005359

PATIENT
  Age: 71 Year
  Sex: Male
  Weight: 65 kg

DRUGS (2)
  1. ZYVOX [Suspect]
     Active Substance: LINEZOLID
     Indication: Anti-infective therapy
     Dosage: 300 ML, 2X/13 DAYS
     Route: 041
     Dates: start: 20231103, end: 20231115
  2. HENG JIE [LINEZOLID] [Concomitant]
     Indication: Anti-infective therapy
     Dosage: 0.6 G, 2X/WEEK
     Route: 048
     Dates: start: 20231216, end: 20231222

REACTIONS (3)
  - Platelet count decreased [Recovering/Resolving]
  - Dry mouth [Recovering/Resolving]
  - Thirst [Recovering/Resolving]

NARRATIVE: CASE EVENT DATE: 20231106
